FAERS Safety Report 8873192 (Version 1)
Quarter: 2012Q4

REPORT INFORMATION
  Report Type: 
  Country: US (occurrence: US)
  Receive Date: 20121029
  Receipt Date: 20121029
  Transmission Date: 20130627
  Serious: Yes (Other)
  Sender: FDA-Public Use
  Company Number: US-PFIZER INC-2012269503

PATIENT
  Age: 81 Year
  Sex: Female

DRUGS (7)
  1. LYRICA [Suspect]
     Indication: NERVE PAIN
     Dosage: 50 mg, 2x/day
     Route: 048
     Dates: start: 201112
  2. METOPROLOL [Concomitant]
     Indication: BLOOD PRESSURE HIGH
     Dosage: 50 mg, daily
  3. LISINOPRIL [Concomitant]
     Indication: BLOOD PRESSURE HIGH
     Dosage: 40 mg, 2x/day
  4. FUROSEMIDE [Concomitant]
     Indication: DIURETIC THERAPY
     Dosage: 20 mg, daily
  5. FUROSEMIDE [Concomitant]
     Indication: BLOOD PRESSURE HIGH
  6. AMLODIPINE [Concomitant]
     Indication: BLOOD PRESSURE HIGH
     Dosage: two tablets of 5mg daily
  7. LEVOTHYROXINE [Concomitant]
     Indication: THYROID DISORDER
     Dosage: 0.15 mg, daily

REACTIONS (2)
  - Cystitis [Unknown]
  - Urinary incontinence [Unknown]
